FAERS Safety Report 12224546 (Version 1)
Quarter: 2016Q1

REPORT INFORMATION
  Report Type: Other
  Country: US (occurrence: US)
  Receive Date: 20160331
  Receipt Date: 20160331
  Transmission Date: 20160526
  Serious: Yes (Other)
  Sender: FDA-Public Use
  Company Number: US-SHIRE-US201603049

PATIENT
  Age: 62 Year
  Sex: Male

DRUGS (1)
  1. GATTEX [Suspect]
     Active Substance: TEDUGLUTIDE\WATER
     Indication: SHORT-BOWEL SYNDROME
     Dosage: UNK
     Route: 058
     Dates: start: 20160304

REACTIONS (10)
  - Abdominal pain [Recovering/Resolving]
  - Flatulence [Unknown]
  - Muscle spasms [Unknown]
  - Gastrooesophageal reflux disease [Recovering/Resolving]
  - Injection site bruising [Unknown]
  - Abdominal distension [Unknown]
  - Regurgitation [Unknown]
  - Constipation [Unknown]
  - Nausea [Recovered/Resolved]
  - Tracheomalacia [Unknown]

NARRATIVE: CASE EVENT DATE: 201603
